FAERS Safety Report 9236257 (Version 3)
Quarter: 2013Q3

REPORT INFORMATION
  Report Type: Spontaneous
  Country: US (occurrence: US)
  Receive Date: 20130417
  Receipt Date: 20130923
  Transmission Date: 20140515
  Serious: Yes (Hospitalization, Disabling)
  Sender: FDA-Public Use
  Company Number: US-MERCK-1304USA007313

PATIENT
  Age: 16 Year
  Sex: Female

DRUGS (2)
  1. ZOCOR [Suspect]
     Indication: VERTEBRAL ARTERY DISSECTION
     Dosage: 80 MG, QD
     Route: 048
     Dates: start: 20130404, end: 20130409
  2. ASPIRIN [Concomitant]

REACTIONS (9)
  - Arthropathy [Not Recovered/Not Resolved]
  - Skin reaction [Not Recovered/Not Resolved]
  - Chest pain [Not Recovered/Not Resolved]
  - Musculoskeletal pain [Not Recovered/Not Resolved]
  - Myalgia [Not Recovered/Not Resolved]
  - Blood potassium decreased [Not Recovered/Not Resolved]
  - Off label use [Unknown]
  - Pain in extremity [Not Recovered/Not Resolved]
  - Pain [Not Recovered/Not Resolved]
